FAERS Safety Report 18409126 (Version 1)
Quarter: 2020Q4

REPORT INFORMATION
  Report Type: Spontaneous
  Country: US (occurrence: US)
  Receive Date: 20201020
  Receipt Date: 20201020
  Transmission Date: 20210114
  Serious: Yes (Disabling)
  Sender: FDA-Public Use
  Company Number: None

PATIENT
  Age: 18 Year
  Sex: Female
  Weight: 54 kg

DRUGS (2)
  1. LITHIUM 750 MG [Concomitant]
  2. VENLAFAXINE GENERIC OF EFFEXOR [Suspect]
     Active Substance: VENLAFAXINE HYDROCHLORIDE
     Indication: MAJOR DEPRESSION

REACTIONS (6)
  - Fatigue [None]
  - Somnolence [None]
  - Feeling abnormal [None]
  - Disturbance in attention [None]
  - Sleep disorder [None]
  - Hypersomnia [None]

NARRATIVE: CASE EVENT DATE: 20180110
